FAERS Safety Report 5082056-9 (Version None)
Quarter: 2006Q3

REPORT INFORMATION
  Report Type: 
  Country: None (occurrence: None)
  Receive Date: 20060811
  Receipt Date: 20060804
  Transmission Date: 20061208
  Serious: Yes (Hospitalization)
  Sender: FDA-Public Use
  Company Number: 2006080080

PATIENT
  Age: 69 Year
  Sex: Male

DRUGS (9)
  1. LIPITOR [Suspect]
     Indication: HYPERLIPIDAEMIA
     Dosage: 5 MG (1 IN 1 D), ORAL
     Route: 048
     Dates: start: 20060506, end: 20060603
  2. WARFARIN SODIUM [Suspect]
     Indication: CEREBRAL INFARCTION
     Dosage: 4.5 MG (FREQUENCY: QD), ORAL
     Route: 048
     Dates: start: 20050101
  3. TICLOPIDINE HYDROCHLORIDE [Concomitant]
  4. ISOSORBIDE MONONITRATE [Concomitant]
  5. BETAXOLOL [Concomitant]
  6. ACETYLSALICYLIC ACID SRT [Concomitant]
  7. CALCIUM POLYSTYRENE SULFONATE [Concomitant]
  8. ALLOPURINOL [Concomitant]
  9. ISOPHANE INSULIN [Concomitant]

REACTIONS (6)
  - CONJUNCTIVAL HAEMORRHAGE [None]
  - CONJUNCTIVAL HYPERAEMIA [None]
  - HAEMORRHAGIC DIATHESIS [None]
  - INTERNATIONAL NORMALISED RATIO INCREASED [None]
  - MYOCARDIAL INFARCTION [None]
  - PROTHROMBIN TIME PROLONGED [None]
